FAERS Safety Report 22003557 (Version 1)
Quarter: 2023Q1

REPORT INFORMATION
  Report Type: Spontaneous
  Country: JP (occurrence: JP)
  Receive Date: 20230217
  Receipt Date: 20230217
  Transmission Date: 20230417
  Serious: Yes (Other)
  Sender: FDA-Public Use
  Company Number: JP-SUN PHARMACEUTICAL INDUSTRIES LTD-2023RR-377858

PATIENT
  Age: 78 Year
  Sex: Male

DRUGS (5)
  1. ASPIRIN [Suspect]
     Active Substance: ASPIRIN
     Indication: Cerebral artery embolism
     Dosage: 200 MILLIGRAM
     Route: 048
  2. CLOPIDOGREL [Suspect]
     Active Substance: CLOPIDOGREL BISULFATE
     Indication: Cerebral artery embolism
     Dosage: 300 MILLIGRAM
     Route: 065
  3. ARGATROBAN [Suspect]
     Active Substance: ARGATROBAN
     Indication: Cerebral artery embolism
     Dosage: UNK
     Route: 042
  4. EDARAVONE [Suspect]
     Active Substance: EDARAVONE
     Indication: Cerebral artery embolism
     Dosage: UNK
     Route: 065
  5. DEXTRAN [Suspect]
     Active Substance: DEXTRAN
     Indication: Cerebral artery embolism
     Dosage: LOW-MOLECULAR-WEIGHT
     Route: 065

REACTIONS (2)
  - Condition aggravated [Unknown]
  - Drug ineffective [Unknown]
